FAERS Safety Report 10420691 (Version 1)
Quarter: 2014Q3

REPORT INFORMATION
  Report Type: Spontaneous
  Country: US (occurrence: None)
  Receive Date: 20140829
  Receipt Date: 20140829
  Transmission Date: 20150326
  Serious: Yes (Disabling)
  Sender: FDA-Public Use
  Company Number: None

PATIENT
  Age: 40 Year
  Sex: Male
  Weight: 104.33 kg

DRUGS (1)
  1. TRANSDERMAL LIDOCAINE 5% WATSON [Suspect]
     Active Substance: LIDOCAINE
     Indication: NEURALGIA
     Dates: start: 20140730, end: 20140804

REACTIONS (6)
  - Presyncope [None]
  - Dizziness [None]
  - Product quality issue [None]
  - Blood pressure decreased [None]
  - Lethargy [None]
  - Product substitution issue [None]

NARRATIVE: CASE EVENT DATE: 20140730
